FAERS Safety Report 25802185 (Version 2)
Quarter: 2025Q3

REPORT INFORMATION
  Report Type: Report from Study
  Country: US (occurrence: US)
  Receive Date: 20250915
  Receipt Date: 20250930
  Transmission Date: 20251021
  Serious: No
  Sender: SANOFI AVENTIS
  Company Number: US-SA-2025SA274531

PATIENT
  Age: 63 Year
  Sex: Male
  Weight: 79.55 kg

DRUGS (18)
  1. NEXVIAZYME [Suspect]
     Active Substance: AVALGLUCOSIDASE ALFA-NGPT
     Indication: Glycogen storage disease type II
     Dosage: 1500 MG, QOW
     Route: 042
     Dates: start: 202408
  2. CETIRIZINE HYDROCHLORIDE [Concomitant]
     Active Substance: CETIRIZINE HYDROCHLORIDE
  3. STERILE WATER [Concomitant]
     Active Substance: WATER
  4. EPINEPHRINE [Concomitant]
     Active Substance: EPINEPHRINE
  5. ELIQUIS [Concomitant]
     Active Substance: APIXABAN
  6. SODIUM CHLORIDE [Concomitant]
     Active Substance: SODIUM CHLORIDE
  7. METRONIDAZOLE [Concomitant]
     Active Substance: METRONIDAZOLE
  8. LIDOCAINE [Concomitant]
     Active Substance: LIDOCAINE
  9. LIDOCAINE\PRILOCAINE [Concomitant]
     Active Substance: LIDOCAINE\PRILOCAINE
  10. CALCIUM [Concomitant]
     Active Substance: CALCIUM
  11. DEXTROSE [Concomitant]
     Active Substance: DEXTROSE MONOHYDRATE
  12. ACETAMINOPHEN [Concomitant]
     Active Substance: ACETAMINOPHEN
  13. VALTREX [Concomitant]
     Active Substance: VALACYCLOVIR HYDROCHLORIDE
  14. OXYGEN [Concomitant]
     Active Substance: OXYGEN
  15. CIALIS [Concomitant]
     Active Substance: TADALAFIL
  16. HEPARIN [Concomitant]
     Active Substance: HEPARIN SODIUM
  17. SODIUM CHLORIDE [Concomitant]
     Active Substance: SODIUM CHLORIDE
  18. VITAMINS [Concomitant]
     Active Substance: VITAMINS

REACTIONS (4)
  - Oxygen saturation abnormal [Recovering/Resolving]
  - Sleep disorder due to a general medical condition [Recovering/Resolving]
  - Infusion site extravasation [Unknown]
  - Infusion site swelling [Unknown]

NARRATIVE: CASE EVENT DATE: 20250910
